FAERS Safety Report 9206053 (Version 1)
Quarter: 2013Q2

REPORT INFORMATION
  Report Type: Spontaneous
  Country: US (occurrence: US)
  Receive Date: 20130403
  Receipt Date: 20130403
  Transmission Date: 20140414
  Serious: Yes (Other)
  Sender: FDA-Public Use
  Company Number: US-BAYER-2013-040939

PATIENT
  Age: 70 Year
  Sex: Male

DRUGS (1)
  1. MOXIFLOXACIN ORAL [Suspect]
     Indication: PNEUMONIA
     Route: 048

REACTIONS (2)
  - Uveitis [None]
  - Iris transillumination defect [None]
